FAERS Safety Report 8112850-9 (Version None)
Quarter: 2012Q1

REPORT INFORMATION
  Report Type: 
  Country: None (occurrence: None)
  Receive Date: 20120203
  Receipt Date: 20120130
  Transmission Date: 20120608
  Serious: Yes (Other)
  Sender: FDA-Public Use
  Company Number: BR-ABBOTT-12P-020-0899851-00

PATIENT
  Sex: Female
  Weight: 80 kg

DRUGS (6)
  1. HUMIRA [Suspect]
     Indication: RHEUMATOID ARTHRITIS
     Route: 058
     Dates: end: 20100101
  2. COMBINED FORMULA [Concomitant]
     Indication: MUSCULOSKELETAL PAIN
  3. METOPROLOL SUCCINATE [Concomitant]
     Indication: CARDIAC DISORDER
     Dosage: IN THE MORNING
     Route: 048
  4. ARAVA [Concomitant]
     Indication: MUSCULOSKELETAL PAIN
     Route: 048
  5. CORUS [Concomitant]
     Indication: CARDIAC DISORDER
     Route: 048
  6. UNSPECIFIED DRUG [Concomitant]
     Indication: SWELLING

REACTIONS (8)
  - NOSOCOMIAL INFECTION [None]
  - ARTHRITIS [None]
  - FIBROMYALGIA [None]
  - ANAEMIA [None]
  - HYPERTENSION [None]
  - OSTEOARTHRITIS [None]
  - SPINAL OSTEOARTHRITIS [None]
  - PNEUMONIA [None]
